FAERS Safety Report 8889450 (Version 1)
Quarter: 2012Q4

REPORT INFORMATION
  Report Type: Spontaneous
  Country: US (occurrence: None)
  Receive Date: 20121102
  Receipt Date: 20121102
  Transmission Date: 20130627
  Serious: Yes (Hospitalization)
  Sender: FDA-Public Use
  Company Number: None

PATIENT
  Age: 71 Year
  Sex: Male

DRUGS (1)
  1. RANIBIZUMAB [Suspect]
     Dates: start: 20121012, end: 20120919

REACTIONS (2)
  - Cardiac failure congestive [None]
  - Dyspnoea [None]
